FAERS Safety Report 7464962-0 (Version None)
Quarter: 2011Q2

REPORT INFORMATION
  Report Type: 
  Country: None (occurrence: None)
  Receive Date: 20110509
  Receipt Date: 20110428
  Transmission Date: 20111010
  Serious: No
  Sender: FDA-Public Use
  Company Number: FR-JNJFOC-20110410726

PATIENT
  Age: 7 Decade
  Sex: Female

DRUGS (1)
  1. DURAGESIC-100 [Suspect]
     Indication: POST PROCEDURAL COMPLICATION
     Dosage: FOR ABOUT 1 YEAR
     Route: 062

REACTIONS (3)
  - PRODUCT ADHESION ISSUE [None]
  - WITHDRAWAL SYNDROME [None]
  - TREATMENT NONCOMPLIANCE [None]
